FAERS Safety Report 7959765-4 (Version None)
Quarter: 2011Q4

REPORT INFORMATION
  Report Type: 
  Country: None (occurrence: None)
  Receive Date: 20111206
  Receipt Date: 20111128
  Transmission Date: 20120403
  Serious: Yes (Hospitalization)
  Sender: FDA-Public Use
  Company Number: FR-GLAXOSMITHKLINE-B0767023A

PATIENT
  Age: 46 Year
  Sex: Male

DRUGS (1)
  1. SORIATANE [Suspect]
     Indication: KERATOSIS FOLLICULAR
     Route: 048
     Dates: start: 19920101, end: 20100801

REACTIONS (2)
  - HYPERTRIGLYCERIDAEMIA [None]
  - OSTEONECROSIS [None]
